FAERS Safety Report 15634245 (Version 2)
Quarter: 2020Q2

REPORT INFORMATION
  Report Type: Spontaneous
  Country: IL (occurrence: IL)
  Receive Date: 20181119
  Receipt Date: 20200609
  Transmission Date: 20200713
  Serious: Yes (Other)
  Sender: FDA-Public Use
  Company Number: IL-PFIZER INC-2018471098

PATIENT
  Sex: Female

DRUGS (1)
  1. AROMASIN [Suspect]
     Active Substance: EXEMESTANE
     Dosage: UNK

REACTIONS (1)
  - Haemorrhage urinary tract [Unknown]
